FAERS Safety Report 4674799-3 (Version None)
Quarter: 2005Q2

REPORT INFORMATION
  Report Type: 
  Country: None (occurrence: None)
  Receive Date: 20050525
  Receipt Date: 20050516
  Transmission Date: 20051028
  Serious: Yes (Hospitalization)
  Sender: FDA-Public Use
  Company Number: 231577K05USA

PATIENT
  Age: 29 Year
  Sex: Male

DRUGS (3)
  1. REBIF [Suspect]
     Indication: MULTIPLE SCLEROSIS
     Dosage: 44 MCG, 3 IN 1 WEEKS, SUBCUTANEOUS
     Route: 058
     Dates: start: 20031101, end: 20050416
  2. WELLBUTRIN [Suspect]
     Dates: start: 20050301, end: 20050501
  3. EFFEXOR [Suspect]
     Dosage: 75 MG, 1 IN 1 DAYS, ORAL
     Route: 048
     Dates: start: 20050401

REACTIONS (6)
  - ANXIETY [None]
  - DEPRESSION [None]
  - FAECAL INCONTINENCE [None]
  - PSYCHOTIC DISORDER [None]
  - SELF-INJURIOUS IDEATION [None]
  - SUICIDAL IDEATION [None]
